FAERS Safety Report 18154637 (Version 8)
Quarter: 2023Q2

REPORT INFORMATION
  Report Type: Spontaneous
  Country: US (occurrence: US)
  Receive Date: 20200817
  Receipt Date: 20230509
  Transmission Date: 20230722
  Serious: No
  Sender: FDA-Public Use
  Company Number: US-BEH-2020121175

PATIENT
  Age: 60 Year
  Sex: Female

DRUGS (18)
  1. PRIVIGEN [Suspect]
     Active Substance: HUMAN IMMUNOGLOBULIN G
     Indication: Kidney transplant rejection
     Dosage: 30 GRAM, QW
     Route: 042
     Dates: start: 20200806
  2. PRIVIGEN [Suspect]
     Active Substance: HUMAN IMMUNOGLOBULIN G
     Indication: Fabry^s disease
     Dosage: 30 GRAM, QW
     Route: 042
     Dates: start: 20200814
  3. PRIVIGEN [Suspect]
     Active Substance: HUMAN IMMUNOGLOBULIN G
     Dosage: 10 GRAM, QW
     Route: 042
     Dates: start: 20200807
  4. PRIVIGEN [Suspect]
     Active Substance: HUMAN IMMUNOGLOBULIN G
     Dosage: 20 GRAM, QW
     Route: 042
     Dates: start: 20200807
  5. PRIVIGEN [Suspect]
     Active Substance: HUMAN IMMUNOGLOBULIN G
     Dosage: UNK
     Route: 042
     Dates: start: 20200820, end: 20200820
  6. PRIVIGEN [Suspect]
     Active Substance: HUMAN IMMUNOGLOBULIN G
     Dosage: 10 GRAM, QW
     Route: 042
     Dates: start: 20200804
  7. PRIVIGEN [Suspect]
     Active Substance: HUMAN IMMUNOGLOBULIN G
     Dosage: 20 GRAM, QW
     Route: 042
     Dates: start: 20200804
  8. PRIVIGEN [Suspect]
     Active Substance: HUMAN IMMUNOGLOBULIN G
     Dosage: UNK
     Route: 042
     Dates: start: 20200827, end: 20200827
  9. FABRAZYME [Suspect]
     Active Substance: AGALSIDASE BETA
     Indication: Fabry^s disease
     Dosage: UNK, Q3W
     Route: 042
     Dates: start: 20040728
  10. FABRAZYME [Suspect]
     Active Substance: AGALSIDASE BETA
     Dosage: 70 MILLIGRAM, QOW
     Route: 042
     Dates: start: 201912
  11. FABRAZYME [Suspect]
     Active Substance: AGALSIDASE BETA
     Dosage: 75 MILLIGRAM, QOW
     Route: 042
     Dates: start: 20191203
  12. FABRAZYME [Suspect]
     Active Substance: AGALSIDASE BETA
     Dosage: UNK
     Dates: start: 20200831
  13. FABRAZYME [Suspect]
     Active Substance: AGALSIDASE BETA
     Dosage: UNK
     Route: 065
     Dates: start: 20191226
  14. BENADRYL [Concomitant]
     Active Substance: DIPHENHYDRAMINE HYDROCHLORIDE
     Indication: Premedication
     Dosage: 12.5 MILLIGRAM
     Route: 065
  15. BENADRYL [Concomitant]
     Active Substance: DIPHENHYDRAMINE HYDROCHLORIDE
     Dosage: 25 MILLIGRAM
  16. BENADRYL [Concomitant]
     Active Substance: DIPHENHYDRAMINE HYDROCHLORIDE
     Dosage: 25 MILLIGRAM
     Route: 065
     Dates: start: 20200820, end: 20200820
  17. BENADRYL [Concomitant]
     Active Substance: DIPHENHYDRAMINE HYDROCHLORIDE
     Dosage: 25 MILLIGRAM
     Route: 065
     Dates: start: 20200827
  18. ADENOSINE [Concomitant]
     Active Substance: ADENOSINE
     Dosage: UNK
     Route: 065

REACTIONS (23)
  - Blood pressure increased [Unknown]
  - Chest discomfort [Recovered/Resolved]
  - Somnolence [Unknown]
  - No adverse event [Unknown]
  - Product use in unapproved indication [Unknown]
  - Decreased appetite [Unknown]
  - Infusion site pain [Unknown]
  - Hypoaesthesia [Unknown]
  - Paraesthesia [Unknown]
  - Dizziness [Recovering/Resolving]
  - Blood pressure increased [Recovered/Resolved]
  - Chest discomfort [Not Recovered/Not Resolved]
  - Chest discomfort [Unknown]
  - Decreased appetite [Unknown]
  - Feeling drunk [Unknown]
  - Swelling face [Unknown]
  - Headache [Recovered/Resolved]
  - Nausea [Recovered/Resolved]
  - Chest discomfort [Recovered/Resolved]
  - Blood pressure increased [Unknown]
  - No adverse event [Unknown]
  - Inappropriate schedule of product administration [Unknown]
  - Pain in extremity [Recovered/Resolved]

NARRATIVE: CASE EVENT DATE: 20200101
